FAERS Safety Report 13130708 (Version 1)
Quarter: 2017Q1

REPORT INFORMATION
  Report Type: Spontaneous
  Country: US (occurrence: US)
  Receive Date: 20170118
  Receipt Date: 20170118
  Transmission Date: 20170428
  Serious: Yes (Hospitalization, Disabling)
  Sender: FDA-Public Use
  Company Number: None

PATIENT
  Age: 66 Year
  Sex: Male
  Weight: 73.7 kg

DRUGS (17)
  1. MULTIVITAMIN [Concomitant]
     Active Substance: VITAMINS
  2. NIFEDIPINE. [Concomitant]
     Active Substance: NIFEDIPINE
  3. FUROSEMIDE. [Concomitant]
     Active Substance: FUROSEMIDE
  4. IRBESARTAN HYDROCHLOROTHIAZIDE [Concomitant]
     Active Substance: HYDROCHLOROTHIAZIDE\IRBESARTAN
  5. ONDANSETRON [Concomitant]
     Active Substance: ONDANSETRON
  6. CETIRIZINE [Concomitant]
     Active Substance: CETIRIZINE HYDROCHLORIDE
  7. LOSARTAN. [Concomitant]
     Active Substance: LOSARTAN
  8. SIMVASTATIN. [Concomitant]
     Active Substance: SIMVASTATIN
  9. FINASTERIDE. [Concomitant]
     Active Substance: FINASTERIDE
  10. METHYLPHENIDATE. [Concomitant]
     Active Substance: METHYLPHENIDATE
  11. GEMCITABINE [Suspect]
     Active Substance: GEMCITABINE\GEMCITABINE HYDROCHLORIDE
     Indication: CHOLANGIOCARCINOMA
     Dosage: 2,010MG IN 327.9ML 0.9% NACL D1+8 OF 21 DAY CYCLE IV VIA RIGHT CHEST PORT
     Route: 042
     Dates: start: 20161114, end: 20161212
  12. ASPIRIN. [Concomitant]
     Active Substance: ASPIRIN
  13. CHOLECALCIFEROL [Concomitant]
     Active Substance: CHOLECALCIFEROL
  14. CISPLATIN. [Suspect]
     Active Substance: CISPLATIN
     Indication: CHOLANGIOCARCINOMA
     Dosage: 50MG IN 325ML 0.9% NACL D1+8 OF 21 DAY CYCLE IV VIA RIGHT CHEST PORT
     Route: 042
     Dates: start: 20161114, end: 20161212
  15. LORAZEPAM. [Concomitant]
     Active Substance: LORAZEPAM
  16. LOSARTAN HYDROCHLOROTHIAZIDE [Concomitant]
     Active Substance: HYDROCHLOROTHIAZIDE\LOSARTAN POTASSIUM
  17. PROCHLORPERAZINE. [Concomitant]
     Active Substance: PROCHLORPERAZINE

REACTIONS (2)
  - Vasculitis [None]
  - Extremity necrosis [None]

NARRATIVE: CASE EVENT DATE: 20161205
